FAERS Safety Report 10432092 (Version 2)
Quarter: 2014Q3

REPORT INFORMATION
  Report Type: Spontaneous
  Country: ES (occurrence: ES)
  Receive Date: 20140905
  Receipt Date: 20140916
  Transmission Date: 20150326
  Serious: Yes (Death, Hospitalization, Other)
  Sender: FDA-Public Use
  Company Number: ES-ALEXION PHARMACEUTICALS INC-A201403370

PATIENT

DRUGS (5)
  1. SOLIRIS [Suspect]
     Active Substance: ECULIZUMAB
     Dosage: UNK
     Route: 042
  2. DEFERASIROX [Concomitant]
     Active Substance: DEFERASIROX
     Indication: PRODUCT USED FOR UNKNOWN INDICATION
     Route: 065
  3. HEPARIN [Concomitant]
     Active Substance: HEPARIN SODIUM
     Indication: PRODUCT USED FOR UNKNOWN INDICATION
     Route: 065
  4. SOLIRIS [Suspect]
     Active Substance: ECULIZUMAB
     Indication: PAROXYSMAL NOCTURNAL HAEMOGLOBINURIA
     Dosage: 600 MG, QW
     Route: 042
     Dates: start: 20140226, end: 20140319
  5. SOLIRIS [Suspect]
     Active Substance: ECULIZUMAB
     Dosage: 900 MG, Q2W
     Route: 042
     Dates: start: 20140326

REACTIONS (21)
  - Budd-Chiari syndrome [Unknown]
  - Shock haemorrhagic [Unknown]
  - Coagulation time prolonged [Unknown]
  - Duodenal perforation [Unknown]
  - Abdominal pain [Unknown]
  - Multi-organ failure [Fatal]
  - Anaemia [Unknown]
  - Haemoglobin decreased [Unknown]
  - Hypoproteinaemia [Unknown]
  - Pleural effusion [Unknown]
  - Pancreatic necrosis [Unknown]
  - Renal impairment [Unknown]
  - Transfusion [Unknown]
  - Intestinal perforation [Unknown]
  - Vomiting [Unknown]
  - Platelet count decreased [Unknown]
  - Ascites [Unknown]
  - Abdominal wall haemorrhage [Unknown]
  - Oedema peripheral [Recovering/Resolving]
  - Hepatic neoplasm [Unknown]
  - Metrorrhagia [Unknown]

NARRATIVE: CASE EVENT DATE: 20140723
